FAERS Safety Report 13043175 (Version 1)
Quarter: 2016Q4

REPORT INFORMATION
  Report Type: Report from Study
  Country: None (occurrence: AU)
  Receive Date: 20161219
  Receipt Date: 20161219
  Transmission Date: 20170207
  Serious: Yes (Hospitalization, Other)
  Sender: FDA-Public Use
  Company Number: AU-ABBVIE-16P-008-1780125-00

PATIENT
  Age: 67 Year
  Sex: Female

DRUGS (1)
  1. DUODOPA [Suspect]
     Active Substance: CARBIDOPA\LEVODOPA
     Indication: PARKINSON^S DISEASE
     Dosage: 16HRLY INFUSION
     Route: 050
     Dates: start: 20161017

REACTIONS (5)
  - Stoma site discharge [Not Recovered/Not Resolved]
  - Anaesthetic complication [Unknown]
  - Malaise [Unknown]
  - Post procedural sepsis [Recovered/Resolved]
  - Stoma site cellulitis [Recovering/Resolving]

NARRATIVE: CASE EVENT DATE: 20161017
